FAERS Safety Report 7423723-9 (Version None)
Quarter: 2011Q1

REPORT INFORMATION
  Report Type: 
  Country: None (occurrence: None)
  Receive Date: 20110302
  Receipt Date: 20110113
  Transmission Date: 20110831
  Serious: No
  Sender: FDA-Public Use
  Company Number: 025485

PATIENT
  Sex: Male
  Weight: 77.1 kg

DRUGS (2)
  1. CIMZIA [Suspect]
     Indication: CROHN'S DISEASE
     Dosage: (ONE SHOT IN EACH THIGH (DOSE UNSPECIFIED) SUBCUTANEOUS)
     Route: 058
     Dates: start: 20090401
  2. PENTASA [Concomitant]

REACTIONS (1)
  - TOOTHACHE [None]
